FAERS Safety Report 5074730-5 (Version None)
Quarter: 2006Q3

REPORT INFORMATION
  Report Type: 
  Country: None (occurrence: None)
  Receive Date: 20060803
  Receipt Date: 20060726
  Transmission Date: 20061208
  Serious: Yes (Other)
  Sender: FDA-Public Use
  Company Number: 2006BL004330

PATIENT
  Age: 25 Year
  Sex: Male

DRUGS (4)
  1. DEXAMETHASONE [Suspect]
     Indication: TESTIS CANCER
     Dosage: 8  MILLIGRAMS DAILY; 4 MILLIGRAMS DAILY
  2. BLEOMYCIN [Suspect]
     Indication: TESTIS CANCER
     Dosage: 20 INTERNATIONAL UNITS
  3. CISPLATIN [Suspect]
     Indication: TESTIS CANCER
     Dosage: 40 MILLIGRAMS PER SQUARE METER
  4. ETOPOSIDE [Suspect]
     Indication: TESTIS CANCER

REACTIONS (4)
  - BONE SWELLING [None]
  - GAIT DISTURBANCE [None]
  - GROIN PAIN [None]
  - OSTEONECROSIS [None]
